FAERS Safety Report 24055164 (Version 2)
Quarter: 2024Q3

REPORT INFORMATION
  Report Type: Spontaneous
  Country: US (occurrence: US)
  Receive Date: 20240705
  Receipt Date: 20240705
  Transmission Date: 20241017
  Serious: Yes (Hospitalization, Other)
  Sender: BRISTOL MYERS SQUIBB
  Company Number: US-BRISTOL-MYERS SQUIBB COMPANY-2024-103988

PATIENT
  Age: 64 Year
  Sex: Male
  Weight: 123.38 kg

DRUGS (7)
  1. VIDAZA [Suspect]
     Active Substance: AZACITIDINE
     Indication: Chronic myelomonocytic leukaemia
     Dates: start: 20231127
  2. VIDAZA [Suspect]
     Active Substance: AZACITIDINE
     Dates: start: 20240115
  3. VIDAZA [Suspect]
     Active Substance: AZACITIDINE
     Dates: start: 20240129
  4. VIDAZA [Suspect]
     Active Substance: AZACITIDINE
     Dates: start: 20240226
  5. VIDAZA [Suspect]
     Active Substance: AZACITIDINE
     Dates: start: 20240617
  6. VIDAZA [Suspect]
     Active Substance: AZACITIDINE
     Dosage: 190MG IN 300ML^S OF NORMAL SALINE/HOUR.
     Dates: end: 20240619
  7. VENCLEXTA [Concomitant]
     Active Substance: VENETOCLAX
     Indication: Product used for unknown indication

REACTIONS (9)
  - Heart rate decreased [Unknown]
  - Internal haemorrhage [Not Recovered/Not Resolved]
  - Drug ineffective [Unknown]
  - Lyme disease [Unknown]
  - Nodule [Unknown]
  - Vomiting [Unknown]
  - Haematemesis [Unknown]
  - Off label use [Unknown]
  - Inappropriate schedule of product administration [Unknown]

NARRATIVE: CASE EVENT DATE: 20240116
